FAERS Safety Report 6300642-2 (Version None)
Quarter: 2009Q3

REPORT INFORMATION
  Report Type: 
  Country: None (occurrence: None)
  Receive Date: 20090806
  Receipt Date: 20090724
  Transmission Date: 20100115
  Serious: Yes (Other)
  Sender: FDA-Public Use
  Company Number: GB-BAUSCH-2009BL003746

PATIENT
  Age: 13 Year
  Sex: Male

DRUGS (6)
  1. PREDNISOLONE [Suspect]
     Indication: HEART TRANSPLANT
  2. TACROLIMUS [Suspect]
     Indication: HEART TRANSPLANT
  3. DOXORUBICIN HCL [Suspect]
     Indication: HEART TRANSPLANT
  4. VINCRISTINE [Suspect]
     Indication: HEART TRANSPLANT
  5. CYTARABINE [Concomitant]
  6. THIOGUANINE [Concomitant]

REACTIONS (4)
  - ACUTE LYMPHOCYTIC LEUKAEMIA [None]
  - EPSTEIN-BARR VIRUS ASSOCIATED LYMPHOPROLIFERATIVE DISORDER [None]
  - EPSTEIN-BARR VIRUS INFECTION [None]
  - STAPHYLOCOCCAL BACTERAEMIA [None]
